FAERS Safety Report 9245778 (Version 1)
Quarter: 2013Q2

REPORT INFORMATION
  Report Type: Spontaneous
  Country: US (occurrence: US)
  Receive Date: 20130422
  Receipt Date: 20130422
  Transmission Date: 20140414
  Serious: No
  Sender: FDA-Public Use
  Company Number: US-PFIZER INC-2013125004

PATIENT
  Age: 63 Year
  Sex: Female

DRUGS (6)
  1. XELJANZ [Suspect]
     Indication: RHEUMATOID ARTHRITIS
     Dosage: 5 MG, 2X/DAY
     Route: 048
     Dates: start: 201304
  2. FOLIC ACID [Concomitant]
     Dosage: 1 MG, UNK
  3. ATACAND HCT [Concomitant]
     Dosage: 16-12.5 MG
  4. MAXZIDE [Concomitant]
     Dosage: 37.5 MG, UNK
  5. MAXZIDE [Concomitant]
     Dosage: 25 MG, UNK
  6. TREXALL [Concomitant]
     Dosage: 7.5 MG, UNK

REACTIONS (1)
  - Rhinorrhoea [Unknown]
